FAERS Safety Report 9851308 (Version 1)
Quarter: 2014Q1

REPORT INFORMATION
  Report Type: Spontaneous
  Country: ZA (occurrence: ZA)
  Receive Date: 20140129
  Receipt Date: 20140129
  Transmission Date: 20141002
  Serious: Yes (Other)
  Sender: FDA-Public Use
  Company Number: ZA-PFIZER INC-2014025837

PATIENT
  Age: 10 Year
  Sex: Male

DRUGS (7)
  1. METHYLPREDNISOLONE [Suspect]
     Indication: NEPHROTIC SYNDROME
     Dosage: 20 MG DAILY FOR 4 DAYS PER WEEK
     Dates: start: 1962
  2. METHYLPREDNISOLONE [Suspect]
     Dosage: 24 MG, DAILY
     Dates: start: 196208
  3. METHYLPREDNISOLONE [Suspect]
     Dosage: INTERMITTENT, 7-DAY SHORT COURSE
     Dates: start: 1963
  4. TRIAMCINOLONE [Suspect]
     Indication: NEPHROTIC SYNDROME
     Dosage: 24 MG, DAILY
     Dates: start: 196210
  5. TRIAMCINOLONE [Suspect]
     Dosage: 24 MG, 4 DAYS/WEEK
     Dates: end: 196305
  6. TRIAMCINOLONE [Suspect]
     Dosage: 24 MG, DAILY
     Dates: start: 1963
  7. TRIAMCINOLONE [Suspect]
     Dosage: INTERMITTENT, 11-DAY SHORT COURSE
     Dates: start: 196308

REACTIONS (3)
  - Cushing^s syndrome [Recovering/Resolving]
  - Exophthalmos [Recovering/Resolving]
  - Hyperthyroidism [Recovering/Resolving]
